FAERS Safety Report 5609789-7 (Version None)
Quarter: 2008Q1

REPORT INFORMATION
  Report Type: 
  Country: None (occurrence: None)
  Receive Date: 20080131
  Receipt Date: 20070907
  Transmission Date: 20080703
  Serious: No
  Sender: FDA-Public Use
  Company Number: US-BAYER-200712880BCC

PATIENT
  Age: 80 Year
  Sex: Female
  Weight: 70 kg

DRUGS (4)
  1. ALEVE [Suspect]
     Indication: MYALGIA
     Dosage: UNIT DOSE: 220 MG
     Route: 048
     Dates: start: 20070907
  2. NIACIN [Concomitant]
  3. TENORMIN [Concomitant]
  4. ATENOLOL [Concomitant]

REACTIONS (3)
  - ERYTHEMA [None]
  - HYPERSENSITIVITY [None]
  - PRURITUS [None]
